FAERS Safety Report 16722298 (Version 2)
Quarter: 2019Q3

REPORT INFORMATION
  Report Type: Report from Study
  Country: US (occurrence: US)
  Receive Date: 20190820
  Receipt Date: 20190903
  Transmission Date: 20191005
  Serious: Yes (Hospitalization)
  Sender: FDA-Public Use
  Company Number: US-EXELIXIS-CABO-19023113

PATIENT
  Sex: Female

DRUGS (5)
  1. AMLODIPINE [Concomitant]
     Active Substance: AMLODIPINE BESYLATE
     Dosage: UNK
  2. LEVOTHYROXINE SODIUM. [Concomitant]
     Active Substance: LEVOTHYROXINE SODIUM
     Dosage: UNK
  3. CABOMETYX [Suspect]
     Active Substance: CABOZANTINIB S-MALATE
     Indication: THYROID CANCER METASTATIC
     Dosage: 60 MG
     Dates: end: 20190720
  4. CANDESARTAN. [Concomitant]
     Active Substance: CANDESARTAN
     Dosage: UNK
  5. OMEPRAZOLE. [Concomitant]
     Active Substance: OMEPRAZOLE
     Dosage: UNK

REACTIONS (19)
  - Gastrooesophageal reflux disease [Recovered/Resolved]
  - Mouth haemorrhage [Recovered/Resolved]
  - Diaphragmatic disorder [Unknown]
  - Pleural effusion [Unknown]
  - Cough [Recovered/Resolved]
  - Epistaxis [Recovered/Resolved]
  - Product prescribing error [Unknown]
  - Palmar-plantar erythrodysaesthesia syndrome [Recovered/Resolved]
  - Alopecia [Recovered/Resolved]
  - Dry skin [Recovered/Resolved]
  - Abdominal pain upper [Recovered/Resolved]
  - Respiratory tract infection [Unknown]
  - Pain [Recovered/Resolved]
  - Hypertension [Recovered/Resolved]
  - Fatigue [Recovered/Resolved]
  - Spinal fracture [Unknown]
  - Bone pain [Recovered/Resolved]
  - Dyspnoea [Recovered/Resolved]
  - Bone cancer [Unknown]
